FAERS Safety Report 6155588-X (Version None)
Quarter: 2009Q2

REPORT INFORMATION
  Report Type: 
  Country: None (occurrence: None)
  Receive Date: 20090410
  Receipt Date: 20090410
  Transmission Date: 20091009
  Serious: Yes (Hospitalization)
  Sender: FDA-Public Use
  Company Number: None

PATIENT
  Sex: Male

DRUGS (1)
  1. CORACTEN [Suspect]
     Dosage: 30 MG

REACTIONS (4)
  - DYSPHAGIA [None]
  - PHARYNGEAL OPERATION [None]
  - POST PROCEDURAL COMPLICATION [None]
  - WRONG TECHNIQUE IN DRUG USAGE PROCESS [None]
